FAERS Safety Report 17639207 (Version 1)
Quarter: 2020Q2

REPORT INFORMATION
  Report Type: Other
  Country: PT (occurrence: PT)
  Receive Date: 20200407
  Receipt Date: 20200407
  Transmission Date: 20200713
  Serious: Yes (Life-Threatening, Other)
  Sender: FDA-Public Use
  Company Number: PT-EMD SERONO-E2B_90076464

PATIENT
  Age: 17 Year

DRUGS (2)
  1. SULFASALAZINE. [Suspect]
     Active Substance: SULFASALAZINE
     Indication: ACNE
     Route: 065
  2. METFORMIN [Suspect]
     Active Substance: METFORMIN HYDROCHLORIDE
     Indication: ACNE
     Route: 065

REACTIONS (2)
  - Product use in unapproved indication [Recovered/Resolved]
  - Drug reaction with eosinophilia and systemic symptoms [Recovered/Resolved]
